FAERS Safety Report 4687209-7 (Version None)
Quarter: 2005Q2

REPORT INFORMATION
  Report Type: 
  Country: None (occurrence: None)
  Receive Date: 20050610
  Receipt Date: 20050602
  Transmission Date: 20051028
  Serious: Yes (Other)
  Sender: FDA-Public Use
  Company Number: PHEH2005US06274

PATIENT
  Age: 67 Year
  Sex: Female
  Weight: 82 kg

DRUGS (4)
  1. DIOVAN [Suspect]
     Indication: HYPERTENSION
     Dosage: UNK, QD
     Route: 048
     Dates: start: 20050301, end: 20050530
  2. WELLBUTRIN [Concomitant]
     Indication: DEPRESSION
     Dates: start: 20040101
  3. VITAMINS [Concomitant]
  4. ASPIRIN [Concomitant]
     Indication: HEADACHE
     Dosage: UNK, PRN

REACTIONS (5)
  - COUGH [None]
  - DEHYDRATION [None]
  - NAUSEA [None]
  - PARAESTHESIA [None]
  - UPPER RESPIRATORY TRACT INFECTION [None]
